FAERS Safety Report 5140104-1 (Version None)
Quarter: 2006Q4

REPORT INFORMATION
  Report Type: 
  Country: None (occurrence: None)
  Receive Date: 20061031
  Receipt Date: 20060927
  Transmission Date: 20070319
  Serious: Yes (Death)
  Sender: FDA-Public Use
  Company Number: US-PURDUE-USA_2006_0025292

PATIENT
  Age: 51 Year
  Sex: Male
  Weight: 66 kg

DRUGS (1)
  1. OXYCONTIN [Suspect]
     Indication: SPINAL OSTEOARTHRITIS
     Dosage: 240 MG, BID
     Route: 048
     Dates: start: 20050303, end: 20060924

REACTIONS (1)
  - PNEUMONIA [None]
